FAERS Safety Report 10715957 (Version 1)
Quarter: 2015Q1

REPORT INFORMATION
  Report Type: Spontaneous
  Country: US (occurrence: None)
  Receive Date: 20150109
  Receipt Date: 20150109
  Transmission Date: 20150721
  Serious: Yes (Hospitalization)
  Sender: FDA-Public Use
  Company Number: 2014PROUSA03881

PATIENT
  Age: 60 Year
  Sex: Male
  Weight: 87.9 kg

DRUGS (8)
  1. PROVENGE [Suspect]
     Active Substance: SIPULEUCEL-T
     Indication: PROSTATE CANCER METASTATIC
     Route: 042
     Dates: start: 20140619, end: 20140619
  2. CASODEX [Concomitant]
     Active Substance: BICALUTAMIDE
  3. LIPITOR [Concomitant]
     Active Substance: ATORVASTATIN CALCIUM
  4. CALCIUM +D (CALCIUM CARBONATE, COLECALCIFEROL) [Concomitant]
  5. NORCO [Concomitant]
     Active Substance: ACETAMINOPHEN\HYDROCODONE BITARTRATE
  6. LIDOCAINE (LIDOCAINE HYDROCHLORIDE) [Concomitant]
     Active Substance: LIDOCAINE
  7. COLACE [Concomitant]
     Active Substance: DOCUSATE SODIUM
  8. MORPHINE SULPHATE [Concomitant]
     Active Substance: MORPHINE SULFATE

REACTIONS (1)
  - Spinal cord compression [None]

NARRATIVE: CASE EVENT DATE: 20140713
